FAERS Safety Report 7732058-6 (Version None)
Quarter: 2011Q3

REPORT INFORMATION
  Report Type: 
  Country: None (occurrence: None)
  Receive Date: 20110906
  Receipt Date: 20110729
  Transmission Date: 20111222
  Serious: No
  Sender: FDA-Public Use
  Company Number: US-AMGEN-USASP2011038720

PATIENT
  Age: 73 Year
  Sex: Female

DRUGS (7)
  1. VYTORIN [Concomitant]
  2. OMEPRAZOLE [Concomitant]
  3. CALCIUM CARBONATE [Concomitant]
  4. FLAXSEED OIL [Concomitant]
  5. PROLIA [Suspect]
     Indication: OSTEOPOROSIS POSTMENOPAUSAL
     Dates: start: 20110324
  6. VITAMIN D [Concomitant]
  7. MULTIVITAMIN                       /00097801/ [Concomitant]

REACTIONS (5)
  - BACK PAIN [None]
  - PAIN IN EXTREMITY [None]
  - MUSCULOSKELETAL CHEST PAIN [None]
  - BREAST PAIN [None]
  - PARAESTHESIA [None]
